FAERS Safety Report 13245765 (Version 2)
Quarter: 2020Q4

REPORT INFORMATION
  Report Type: Spontaneous
  Country: US (occurrence: US)
  Receive Date: 20170217
  Receipt Date: 20201120
  Transmission Date: 20210113
  Serious: No
  Sender: FDA-Public Use
  Company Number: US-ELI_LILLY_AND_COMPANY-US201702005658

PATIENT
  Age: 59 Year
  Sex: Female

DRUGS (5)
  1. HUMALOG [Suspect]
     Active Substance: INSULIN LISPRO
     Indication: TYPE 1 DIABETES MELLITUS
     Dosage: 6 U, TID
     Route: 065
  2. HUMALOG [Suspect]
     Active Substance: INSULIN LISPRO
     Dosage: 6 UNK, UNKNOWN
     Route: 065
  3. HUMALOG [Suspect]
     Active Substance: INSULIN LISPRO
     Dosage: 6 U, TID
     Route: 065
  4. LANTUS [Concomitant]
     Active Substance: INSULIN GLARGINE
  5. HUMALOG [Suspect]
     Active Substance: INSULIN LISPRO
     Dosage: 6 UNK, UNKNOWN
     Route: 065

REACTIONS (5)
  - Eye disorder [Not Recovered/Not Resolved]
  - Cataract [Unknown]
  - Blood glucose increased [Unknown]
  - Product dose omission issue [Unknown]
  - Blood glucose increased [Unknown]

NARRATIVE: CASE EVENT DATE: 20170210
